FAERS Safety Report 8010978-5 (Version None)
Quarter: 2011Q4

REPORT INFORMATION
  Report Type: 
  Country: None (occurrence: None)
  Receive Date: 20111228
  Receipt Date: 20111222
  Transmission Date: 20120403
  Serious: Yes (Hospitalization, Other)
  Sender: FDA-Public Use
  Company Number: FR-PFIZER INC-2011311022

PATIENT
  Age: 74 Year
  Sex: Male

DRUGS (10)
  1. AMLODIPINE/ PERINDOPRIL ARGININE [Concomitant]
     Dosage: UNK
  2. PLAVIX [Concomitant]
     Dosage: UNK
  3. ASPIRIN [Concomitant]
     Dosage: UNK
  4. ATENOLOL [Concomitant]
     Dosage: UNK
  5. ATORVASTATIN CALCIUM [Interacting]
     Indication: HYPERCHOLESTEROLAEMIA
     Dosage: 40 MG, 1X/DAY
     Route: 048
     Dates: end: 20110807
  6. ACARBOSE [Suspect]
     Indication: TYPE 2 DIABETES MELLITUS
     Dosage: 50 MG, 2X/DAY
     Route: 048
     Dates: start: 20110711, end: 20110807
  7. PROSCAR [Concomitant]
     Dosage: UNK
  8. REPAGLINIDE [Concomitant]
     Dosage: UNK
  9. LEVOFLOXACIN [Suspect]
     Indication: OSTEITIS
     Dosage: 500 MG, 2X/DAY
     Route: 048
     Dates: start: 20110711, end: 20110807
  10. FUCIDINE CAP [Interacting]
     Indication: OSTEITIS
     Dosage: 500 MG, 3X/DAY
     Route: 048
     Dates: start: 20110711

REACTIONS (3)
  - FALL [None]
  - RHABDOMYOLYSIS [None]
  - OEDEMA PERIPHERAL [None]
